FAERS Safety Report 10345687 (Version 2)
Quarter: 2014Q3

REPORT INFORMATION
  Report Type: Spontaneous
  Country: JP (occurrence: JP)
  Receive Date: 20140728
  Receipt Date: 20140804
  Transmission Date: 20150326
  Serious: Yes (Other)
  Sender: FDA-Public Use
  Company Number: JP-009507513-1407JPN010357

PATIENT
  Age: 71 Year
  Sex: Female

DRUGS (4)
  1. ESLAX [Suspect]
     Active Substance: ROCURONIUM BROMIDE
     Dosage: DAILY DOSAGE UNKNOWN
     Route: 042
     Dates: start: 20140717, end: 20140717
  2. ACELIO [Suspect]
     Active Substance: ACETAMINOPHEN
     Dosage: DAILY DOSAGE UNKNOWN
     Route: 042
     Dates: start: 20140717, end: 20140717
  3. MANNITOL. [Concomitant]
     Active Substance: MANNITOL
     Dosage: 1000 MG, UNK
     Route: 042
     Dates: start: 20140717, end: 20140717
  4. CEFOTIAM [Concomitant]
     Active Substance: CEFOTIAM
     Dosage: DAILY DOSAGE UNKNOWN
     Route: 042
     Dates: start: 20140717, end: 20140717

REACTIONS (1)
  - Platelet count decreased [Recovered/Resolved]

NARRATIVE: CASE EVENT DATE: 20140717
